FAERS Safety Report 8759820 (Version 2)
Quarter: 2012Q4

REPORT INFORMATION
  Report Type: 
  Country: US (occurrence: US)
  Receive Date: 20120829
  Receipt Date: 20121211
  Transmission Date: 20130627
  Serious: Yes (Hospitalization)
  Sender: FDA-Public Use
  Company Number: US-GILEAD-2012-0060369

PATIENT
  Age: 47 Year
  Sex: Female

DRUGS (3)
  1. LETAIRIS [Suspect]
     Indication: COR PULMONALE CHRONIC
     Dosage: 10 mg, QD
     Route: 048
     Dates: start: 20071018
  2. EPOPROSTENOL [Concomitant]
  3. REVATIO [Concomitant]

REACTIONS (3)
  - Renal failure acute [Recovered/Resolved]
  - Renal failure [Unknown]
  - Dialysis [Unknown]
